FAERS Safety Report 8580072-3 (Version None)
Quarter: 2012Q3

REPORT INFORMATION
  Report Type: 
  Country: None (occurrence: None)
  Receive Date: 20120808
  Receipt Date: 20120727
  Transmission Date: 20120928
  Serious: No
  Sender: FDA-Public Use
  Company Number: US-ASTRAZENECA-2012SE29296

PATIENT
  Age: 56 Year
  Sex: Male

DRUGS (5)
  1. PRILOSEC [Suspect]
     Route: 048
  2. NEXIUM [Suspect]
     Route: 048
  3. XANAX [Concomitant]
  4. LEXAPRO [Concomitant]
  5. SEROQUEL [Concomitant]

REACTIONS (8)
  - GASTROOESOPHAGEAL REFLUX DISEASE [None]
  - ANXIETY [None]
  - BIPOLAR DISORDER [None]
  - CHOKING [None]
  - REGURGITATION [None]
  - PANIC ATTACK [None]
  - DEPRESSION [None]
  - DRUG INEFFECTIVE [None]
